FAERS Safety Report 4497173-1 (Version None)
Quarter: 2004Q4

REPORT INFORMATION
  Report Type: 
  Country: None (occurrence: None)
  Receive Date: 20041105
  Receipt Date: 20041016
  Transmission Date: 20050328
  Serious: Yes (Other)
  Sender: FDA-Public Use
  Company Number: 2004079514

PATIENT
  Age: 16 Year
  Sex: Male
  Weight: 63.5036 kg

DRUGS (4)
  1. DRAMAMINE [Suspect]
     Indication: EUPHORIC MOOD
     Dosage: 6-12 TABLETS AT ONCE, ORAL
     Route: 048
     Dates: start: 20040101, end: 20041015
  2. DRAMAMINE [Suspect]
  3. CORICIDIN [Suspect]
     Indication: EUPHORIC MOOD
     Dates: start: 20040101
  4. GUAIFENESIN (GUAIFENESIN) [Suspect]
     Indication: EUPHORIC MOOD
     Dates: start: 20040101

REACTIONS (2)
  - HALLUCINATION [None]
  - INTENTIONAL OVERDOSE [None]
